FAERS Safety Report 8469641-9 (Version None)
Quarter: 2012Q2

REPORT INFORMATION
  Report Type: 
  Country: None (occurrence: None)
  Receive Date: 20120626
  Receipt Date: 20120622
  Transmission Date: 20120825
  Serious: Yes (Disabling, Other)
  Sender: FDA-Public Use
  Company Number: PHHY2011GB113283

PATIENT
  Age: 35 Year
  Sex: Female
  Weight: 53 kg

DRUGS (2)
  1. TRAMADOL HCL [Suspect]
     Indication: PROCEDURAL PAIN
     Dosage: 100 MG, QD
  2. TRAMADOL HCL [Suspect]
     Indication: ABDOMINAL PAIN
     Dosage: 50 MG, QD
     Route: 048
     Dates: start: 20110101, end: 20111101

REACTIONS (4)
  - LETHARGY [None]
  - WITHDRAWAL SYNDROME [None]
  - APATHY [None]
  - ASTHENIA [None]
